FAERS Safety Report 21302760 (Version 1)
Quarter: 2022Q3

REPORT INFORMATION
  Report Type: Spontaneous
  Country: US (occurrence: US)
  Receive Date: 20220907
  Receipt Date: 20220907
  Transmission Date: 20221027
  Serious: Yes (Other)
  Sender: FDA-Public Use
  Company Number: US-PFIZER INC-202201134660

PATIENT
  Age: 39 Year
  Sex: Female

DRUGS (2)
  1. DILANTIN [Suspect]
     Active Substance: PHENYTOIN
     Indication: Idiopathic generalised epilepsy
     Dosage: 100 MG
  2. DILANTIN [Suspect]
     Active Substance: PHENYTOIN
     Indication: Epilepsy

REACTIONS (1)
  - Seizure [Unknown]
